FAERS Safety Report 16441612 (Version 1)
Quarter: 2019Q2

REPORT INFORMATION
  Report Type: Spontaneous
  Country: GB (occurrence: GB)
  Receive Date: 20190617
  Receipt Date: 20190617
  Transmission Date: 20190711
  Serious: Yes (Disabling)
  Sender: FDA-Public Use
  Company Number: GB-MYLANLABS-2019M1056573

PATIENT
  Age: 80 Year
  Sex: Female
  Weight: 58 kg

DRUGS (7)
  1. DOXYCYCLINE. [Suspect]
     Active Substance: DOXYCYCLINE
     Indication: PRODUCT USED FOR UNKNOWN INDICATION
     Dosage: 100 MILLIGRAM
     Dates: start: 20181218
  2. CLARITHROMYCIN. [Concomitant]
     Active Substance: CLARITHROMYCIN
     Dosage: 2 DOSAGE FORM, QD
     Dates: start: 20181218
  3. DOXYCYCLINE. [Concomitant]
     Active Substance: DOXYCYCLINE
     Dosage: 2 DOSAGE FORM, QD
     Dates: start: 20181217
  4. PREDNISOLONE. [Concomitant]
     Active Substance: PREDNISOLONE
     Dosage: 4 DOSAGE FORM, QD
     Dates: start: 20180914
  5. ADCAL                              /00056901/ [Concomitant]
     Active Substance: CARBAZOCHROME
     Dosage: 2 DOSAGE FORM, QD
     Dates: start: 20180914
  6. LANSOPRAZOLE. [Concomitant]
     Active Substance: LANSOPRAZOLE
     Dosage: 2 DOSAGE FORM, QD
     Dates: start: 20180914
  7. RISEDRONATE SODIUM. [Concomitant]
     Active Substance: RISEDRONATE SODIUM
     Dosage: ON THE SAME DAY EACH WEEK
     Dates: start: 20180914

REACTIONS (1)
  - Rash [Recovering/Resolving]

NARRATIVE: CASE EVENT DATE: 20181218
